FAERS Safety Report 23813238 (Version 1)
Quarter: 2024Q2

REPORT INFORMATION
  Report Type: Spontaneous
  Country: US (occurrence: None)
  Receive Date: 20240503
  Receipt Date: 20240503
  Transmission Date: 20240716
  Serious: No
  Sender: FDA-Public Use
  Company Number: 2024A100764

PATIENT
  Sex: Female

DRUGS (1)
  1. TEZEPELUMAB-EKKO [Suspect]
     Active Substance: TEZEPELUMAB-EKKO
     Dosage: 210.0MG/ML UNKNOWN
     Route: 058

REACTIONS (4)
  - Pain [Unknown]
  - Device use issue [Unknown]
  - Accidental exposure to product [Unknown]
  - Device defective [Unknown]
